FAERS Safety Report 15499401 (Version 1)
Quarter: 2018Q4

REPORT INFORMATION
  Report Type: Spontaneous
  Country: US (occurrence: US)
  Receive Date: 20181007
  Receipt Date: 20181007
  Transmission Date: 20190205
  Serious: Yes (Disabling, Other)
  Sender: FDA-Public Use
  Company Number: None

PATIENT
  Age: 35 Year
  Sex: Female
  Weight: 121.5 kg

DRUGS (12)
  1. ENBREL [Suspect]
     Active Substance: ETANERCEPT
     Indication: PSORIATIC ARTHROPATHY
     Dates: start: 20180830, end: 20180920
  2. VITAMIN B COMPLEX [Concomitant]
     Active Substance: CYANOCOBALAMIN\DEXPANTHENOL\NIACINAMIDE\PYRIDOXINE HYDROCHLORIDE\RIBOFLAVIN 5^-PHOSPHATE SODIUM\THIAMINE HYDROCHLORIDE\VITAMIN B COMPLEX
  3. HUMALOG [Concomitant]
     Active Substance: INSULIN LISPRO
  4. DICOFENAC [Concomitant]
  5. CHELATED MAGNESIUM [Concomitant]
  6. TRAZODONE [Concomitant]
     Active Substance: TRAZODONE HYDROCHLORIDE
  7. METFORMIN [Concomitant]
     Active Substance: METFORMIN HYDROCHLORIDE
  8. LANTUS [Concomitant]
     Active Substance: INSULIN GLARGINE
  9. FISH OIL [Concomitant]
     Active Substance: FISH OIL
  10. BIOTIN [Concomitant]
     Active Substance: BIOTIN
  11. TIZANIDINE. [Concomitant]
     Active Substance: TIZANIDINE
  12. MULTIVITAMIN [Concomitant]
     Active Substance: VITAMINS

REACTIONS (6)
  - Crohn^s disease [None]
  - Dyspnoea [None]
  - Diarrhoea [None]
  - Headache [None]
  - Rectal haemorrhage [None]
  - Abdominal pain upper [None]

NARRATIVE: CASE EVENT DATE: 20180915
